FAERS Safety Report 12902477 (Version 2)
Quarter: 2016Q4

REPORT INFORMATION
  Report Type: Spontaneous
  Country: US (occurrence: US)
  Receive Date: 20161102
  Receipt Date: 20161212
  Transmission Date: 20170207
  Serious: No
  Sender: FDA-Public Use
  Company Number: US-PFIZER INC-2016509968

PATIENT
  Age: 57 Year
  Sex: Female

DRUGS (21)
  1. PRAVACHOL [Concomitant]
     Active Substance: PRAVASTATIN SODIUM
     Indication: BLOOD CHOLESTEROL
     Dosage: 20 MG, 1X/DAY(EVERY NIGHT AT BEDTIME)
     Route: 048
  2. TYLENOL [Concomitant]
     Active Substance: ACETAMINOPHEN
     Indication: PYREXIA
  3. INLYTA [Suspect]
     Active Substance: AXITINIB
     Indication: GASTROINTESTINAL NEOPLASM
  4. ALIGN [Concomitant]
     Active Substance: BIFIDOBACTERIUM LONGUM SUBSP. INFANTIS
     Dosage: 4 MG, DAILY
     Route: 048
  5. PRILOSEC [Concomitant]
     Active Substance: OMEPRAZOLE MAGNESIUM
     Dosage: 20 MG, DAILY
     Route: 048
  6. ZOFRAN [Concomitant]
     Active Substance: ONDANSETRON HYDROCHLORIDE
     Indication: VOMITING
  7. INLYTA [Suspect]
     Active Substance: AXITINIB
     Indication: METASTATIC RENAL CELL CARCINOMA
     Dosage: 5 MG, 2X/DAY(Q12H)
     Route: 048
  8. LEVOTHYROXINE. [Concomitant]
     Active Substance: LEVOTHYROXINE
     Dosage: 62.5 UG, DAILY (62.5 MCG PER 0.5 TABLET)
     Route: 048
  9. TOPROL XL [Concomitant]
     Active Substance: METOPROLOL SUCCINATE
     Dosage: 25 MG, 1X/DAY
     Route: 048
  10. FERROUS SULFATE. [Concomitant]
     Active Substance: FERROUS SULFATE
     Dosage: 325 MG, DAILY (65 MG ELEMENTAL IRON)
     Route: 048
  11. ALPRAZOLAM. [Concomitant]
     Active Substance: ALPRAZOLAM
     Indication: SLEEP DISORDER
  12. ZYRTEC [Concomitant]
     Active Substance: CETIRIZINE HYDROCHLORIDE
     Indication: HYPERSENSITIVITY
     Dosage: 10 MG, AS NEEDED (DAILY)
     Route: 048
  13. CLOBETASOL [Concomitant]
     Active Substance: CLOBETASOL
     Dosage: UNK UNK, AS NEEDED (1 APPLICATION, TOPICAL, BID, AS NEEDED)
     Route: 061
  14. VITAMIN D2 [Concomitant]
     Active Substance: ERGOCALCIFEROL
     Indication: VITAMIN SUPPLEMENTATION
     Dosage: 1.25 MG, WEEKLY(VITAMIN D2 50,000 UNITS, ONCE WEEKLY, 5 UNKNOWN UNIT )
     Route: 048
  15. ZESTRIL [Concomitant]
     Active Substance: LISINOPRIL
     Indication: BLOOD PRESSURE ABNORMAL
     Dosage: 5 MG, DAILY
     Route: 048
  16. ZOFRAN [Concomitant]
     Active Substance: ONDANSETRON HYDROCHLORIDE
     Indication: NAUSEA
     Dosage: 8 MG, AS NEEDED (Q8H)
     Route: 048
  17. ALPRAZOLAM. [Concomitant]
     Active Substance: ALPRAZOLAM
     Indication: ANXIETY
     Dosage: 0.25 MG, AS NEEDED(EACH NIGHT AT BEDTIME)
     Route: 048
  18. NOVOLOG [Concomitant]
     Active Substance: INSULIN ASPART
     Dosage: 3 ML, 3X/DAY (100 UNITS/ML, BEFORE MEALS )
     Route: 058
  19. TYLENOL [Concomitant]
     Active Substance: ACETAMINOPHEN
     Indication: PAIN
     Dosage: 650 MG, AS NEEDED (2 TABLET, Q4H)
     Route: 048
  20. IMODIUM A-D [Concomitant]
     Active Substance: LOPERAMIDE HYDROCHLORIDE
     Indication: DIARRHOEA
     Dosage: 2 MG, AS NEEDED (Q4H,NOT TO EXCEED 8 CAPSULES, OR 16 MG, IN 24 HOURS)
     Route: 048
  21. PATADAY [Concomitant]
     Active Substance: OLOPATADINE HYDROCHLORIDE
     Dosage: 2 GTT, DAILY (1 DROP EYE EACH DAILY )
     Route: 047

REACTIONS (2)
  - Diarrhoea [Unknown]
  - Condition aggravated [Unknown]
